FAERS Safety Report 4286783-2 (Version None)
Quarter: 2004Q1

REPORT INFORMATION
  Report Type: 
  Country: None (occurrence: None)
  Receive Date: 20040206
  Receipt Date: 20031210
  Transmission Date: 20041129
  Serious: Yes (Death, Hospitalization)
  Sender: FDA-Public Use
  Company Number: DE-ROCHE-353826

PATIENT
  Age: 49 Year
  Sex: Male

DRUGS (7)
  1. INTERFERON ALFA-2A [Suspect]
     Route: 065
  2. GRANISETRON HYDROCHLORIDE [Suspect]
     Indication: DRUG USE FOR UNKNOWN INDICATION
     Route: 065
  3. VINBLASTINE SULFATE [Suspect]
     Indication: DRUG USE FOR UNKNOWN INDICATION
     Route: 065
  4. GEMZAR [Suspect]
     Indication: DRUG USE FOR UNKNOWN INDICATION
     Route: 065
  5. DEXA [Suspect]
     Indication: DRUG USE FOR UNKNOWN INDICATION
     Route: 065
  6. ZOMETA [Suspect]
     Indication: DRUG USE FOR UNKNOWN INDICATION
     Route: 065
  7. MORPHINE [Concomitant]
     Dates: start: 20020915, end: 20021115

REACTIONS (32)
  - ALPHA 1 GLOBULIN INCREASED [None]
  - ALPHA 2 GLOBULIN INCREASED [None]
  - ANAEMIA [None]
  - BETA GLOBULIN ABNORMAL [None]
  - BLOOD ALBUMIN DECREASED [None]
  - BLOOD ALKALINE PHOSPHATASE INCREASED [None]
  - BLOOD CHOLINESTERASE DECREASED [None]
  - BOWEL SOUNDS ABNORMAL [None]
  - BUNDLE BRANCH BLOCK RIGHT [None]
  - CACHEXIA [None]
  - CARDIOVASCULAR DISORDER [None]
  - COLD SWEAT [None]
  - DRUG TOXICITY [None]
  - DYSPNOEA [None]
  - ELECTROCARDIOGRAM REPOLARISATION ABNORMALITY [None]
  - GAMMA-GLUTAMYLTRANSFERASE INCREASED [None]
  - GENERAL PHYSICAL CONDITION ABNORMAL [None]
  - IMMUNOGLOBULINS INCREASED [None]
  - ISCHAEMIA [None]
  - METASTASES TO BONE [None]
  - METASTASES TO LUNG [None]
  - METASTASES TO NERVOUS SYSTEM [None]
  - METASTASES TO THE MEDIASTINUM [None]
  - MUSCULAR WEAKNESS [None]
  - NEOPLASM PROGRESSION [None]
  - NEUTROPHIL COUNT INCREASED [None]
  - OESOPHAGEAL DISORDER [None]
  - PNEUMONIA [None]
  - PROTHROMBIN TIME SHORTENED [None]
  - QRS AXIS ABNORMAL [None]
  - RETICULOCYTE COUNT DECREASED [None]
  - TACHYCARDIA [None]
